FAERS Safety Report 7743803-8 (Version None)
Quarter: 2011Q3

REPORT INFORMATION
  Report Type: 
  Country: None (occurrence: None)
  Receive Date: 20110912
  Receipt Date: 20110902
  Transmission Date: 20111222
  Serious: Yes (Death, Hospitalization)
  Sender: FDA-Public Use
  Company Number: US-GLAXOSMITHKLINE-A0888770A

PATIENT
  Age: 77 Year
  Sex: Male
  Weight: 115.9 kg

DRUGS (5)
  1. GLUCOTROL [Concomitant]
  2. DIOVAN [Concomitant]
  3. AVANDIA [Suspect]
     Indication: DIABETES MELLITUS
     Dosage: 4MG PER DAY
     Dates: start: 20060707, end: 20091213
  4. GLIPIZIDE [Concomitant]
  5. ALLEGRA [Concomitant]

REACTIONS (2)
  - DISEASE PROGRESSION [None]
  - CARDIAC FAILURE CONGESTIVE [None]
